FAERS Safety Report 8871951 (Version 1)
Quarter: 2012Q4

REPORT INFORMATION
  Report Type: 
  Country: AU (occurrence: AU)
  Receive Date: 20121029
  Receipt Date: 20121029
  Transmission Date: 20130627
  Serious: Yes (Other)
  Sender: FDA-Public Use
  Company Number: PHHY2012AU097022

PATIENT
  Sex: Male

DRUGS (3)
  1. RITALIN [Suspect]
  2. LOVAN [Suspect]
  3. CATAPRES [Suspect]

REACTIONS (1)
  - General physical health deterioration [Unknown]
